FAERS Safety Report 13879469 (Version 1)
Quarter: 2017Q3

REPORT INFORMATION
  Report Type: Spontaneous
  Country: US (occurrence: US)
  Receive Date: 20170817
  Receipt Date: 20170817
  Transmission Date: 20171127
  Serious: No
  Sender: FDA-Public Use
  Company Number: US-ENDO PHARMACEUTICALS INC-2016-007168

PATIENT
  Sex: Female
  Weight: 72.64 kg

DRUGS (2)
  1. SUMATRIPTAN                        /01044802/ [Concomitant]
     Indication: MIGRAINE
     Dosage: UNK
  2. SUMAVEL DOSEPRO [Suspect]
     Active Substance: SUMATRIPTAN SUCCINATE
     Indication: MIGRAINE
     Dosage: UNK, PRN
     Route: 065
     Dates: start: 2013

REACTIONS (4)
  - Drug dose omission [Recovered/Resolved]
  - Blood pressure increased [Unknown]
  - Device malfunction [Recovered/Resolved]
  - Injection site pain [Unknown]

NARRATIVE: CASE EVENT DATE: 2013
